FAERS Safety Report 24845329 (Version 3)
Quarter: 2025Q2

REPORT INFORMATION
  Report Type: Report from Study
  Country: CA (occurrence: CA)
  Receive Date: 20250115
  Receipt Date: 20250530
  Transmission Date: 20250717
  Serious: Yes (Hospitalization, Other)
  Sender: MYLAN
  Company Number: CA-MYLANLABS-2025M1003010

PATIENT
  Age: 39 Year
  Sex: Male

DRUGS (72)
  1. EFFEXOR [Suspect]
     Active Substance: VENLAFAXINE HYDROCHLORIDE
     Indication: Back pain
  2. EFFEXOR [Suspect]
     Active Substance: VENLAFAXINE HYDROCHLORIDE
     Route: 065
  3. EFFEXOR [Suspect]
     Active Substance: VENLAFAXINE HYDROCHLORIDE
     Route: 065
  4. EFFEXOR [Suspect]
     Active Substance: VENLAFAXINE HYDROCHLORIDE
  5. ENTYVIO [Suspect]
     Active Substance: VEDOLIZUMAB
     Indication: Crohn^s disease
  6. ENTYVIO [Suspect]
     Active Substance: VEDOLIZUMAB
  7. ENTYVIO [Suspect]
     Active Substance: VEDOLIZUMAB
     Route: 042
  8. ENTYVIO [Suspect]
     Active Substance: VEDOLIZUMAB
     Route: 042
  9. ENTYVIO [Suspect]
     Active Substance: VEDOLIZUMAB
  10. ENTYVIO [Suspect]
     Active Substance: VEDOLIZUMAB
  11. ENTYVIO [Suspect]
     Active Substance: VEDOLIZUMAB
     Route: 042
  12. ENTYVIO [Suspect]
     Active Substance: VEDOLIZUMAB
     Route: 042
  13. ENTYVIO [Suspect]
     Active Substance: VEDOLIZUMAB
  14. ENTYVIO [Suspect]
     Active Substance: VEDOLIZUMAB
  15. ENTYVIO [Suspect]
     Active Substance: VEDOLIZUMAB
     Route: 042
  16. ENTYVIO [Suspect]
     Active Substance: VEDOLIZUMAB
     Route: 042
  17. ENTYVIO [Suspect]
     Active Substance: VEDOLIZUMAB
  18. ENTYVIO [Suspect]
     Active Substance: VEDOLIZUMAB
  19. ENTYVIO [Suspect]
     Active Substance: VEDOLIZUMAB
     Route: 042
  20. ENTYVIO [Suspect]
     Active Substance: VEDOLIZUMAB
     Route: 042
  21. ENTYVIO [Suspect]
     Active Substance: VEDOLIZUMAB
  22. ENTYVIO [Suspect]
     Active Substance: VEDOLIZUMAB
     Route: 042
  23. ENTYVIO [Suspect]
     Active Substance: VEDOLIZUMAB
  24. ENTYVIO [Suspect]
     Active Substance: VEDOLIZUMAB
     Route: 042
  25. ENTYVIO [Suspect]
     Active Substance: VEDOLIZUMAB
  26. ENTYVIO [Suspect]
     Active Substance: VEDOLIZUMAB
  27. ENTYVIO [Suspect]
     Active Substance: VEDOLIZUMAB
     Route: 042
  28. ENTYVIO [Suspect]
     Active Substance: VEDOLIZUMAB
     Route: 042
  29. ENTYVIO [Suspect]
     Active Substance: VEDOLIZUMAB
  30. ENTYVIO [Suspect]
     Active Substance: VEDOLIZUMAB
  31. ENTYVIO [Suspect]
     Active Substance: VEDOLIZUMAB
     Route: 042
  32. ENTYVIO [Suspect]
     Active Substance: VEDOLIZUMAB
     Route: 042
  33. ENTYVIO [Suspect]
     Active Substance: VEDOLIZUMAB
  34. ENTYVIO [Suspect]
     Active Substance: VEDOLIZUMAB
  35. ENTYVIO [Suspect]
     Active Substance: VEDOLIZUMAB
     Route: 042
  36. ENTYVIO [Suspect]
     Active Substance: VEDOLIZUMAB
     Route: 042
  37. ENTYVIO [Suspect]
     Active Substance: VEDOLIZUMAB
  38. ENTYVIO [Suspect]
     Active Substance: VEDOLIZUMAB
  39. ENTYVIO [Suspect]
     Active Substance: VEDOLIZUMAB
     Route: 042
  40. ENTYVIO [Suspect]
     Active Substance: VEDOLIZUMAB
     Route: 042
  41. ENTYVIO [Suspect]
     Active Substance: VEDOLIZUMAB
  42. ENTYVIO [Suspect]
     Active Substance: VEDOLIZUMAB
  43. ENTYVIO [Suspect]
     Active Substance: VEDOLIZUMAB
     Route: 042
  44. ENTYVIO [Suspect]
     Active Substance: VEDOLIZUMAB
     Route: 042
  45. ENTYVIO [Suspect]
     Active Substance: VEDOLIZUMAB
  46. ENTYVIO [Suspect]
     Active Substance: VEDOLIZUMAB
  47. ENTYVIO [Suspect]
     Active Substance: VEDOLIZUMAB
     Route: 042
  48. ENTYVIO [Suspect]
     Active Substance: VEDOLIZUMAB
     Route: 042
  49. ENTYVIO [Suspect]
     Active Substance: VEDOLIZUMAB
     Indication: Crohn^s disease
     Dosage: 108 MILLIGRAM, Q2W (1 EVERY 2 WEEKS)
     Dates: start: 20240808
  50. ENTYVIO [Suspect]
     Active Substance: VEDOLIZUMAB
     Dosage: 108 MILLIGRAM, Q2W (1 EVERY 2 WEEKS)
     Route: 058
     Dates: start: 20240808
  51. ENTYVIO [Suspect]
     Active Substance: VEDOLIZUMAB
     Dosage: 108 MILLIGRAM, Q2W (1 EVERY 2 WEEKS)
     Route: 058
     Dates: start: 20240808
  52. ENTYVIO [Suspect]
     Active Substance: VEDOLIZUMAB
     Dosage: 108 MILLIGRAM, Q2W (1 EVERY 2 WEEKS)
     Dates: start: 20240808
  53. PANTOPRAZOLE SODIUM [Suspect]
     Active Substance: PANTOPRAZOLE SODIUM
     Indication: Product used for unknown indication
  54. PANTOPRAZOLE SODIUM [Suspect]
     Active Substance: PANTOPRAZOLE SODIUM
     Route: 065
  55. PANTOPRAZOLE SODIUM [Suspect]
     Active Substance: PANTOPRAZOLE SODIUM
     Route: 065
  56. PANTOPRAZOLE SODIUM [Suspect]
     Active Substance: PANTOPRAZOLE SODIUM
  57. DILAUDID [Concomitant]
     Active Substance: HYDROMORPHONE HYDROCHLORIDE
     Indication: Back pain
  58. DILAUDID [Concomitant]
     Active Substance: HYDROMORPHONE HYDROCHLORIDE
     Route: 048
  59. DILAUDID [Concomitant]
     Active Substance: HYDROMORPHONE HYDROCHLORIDE
     Route: 048
  60. DILAUDID [Concomitant]
     Active Substance: HYDROMORPHONE HYDROCHLORIDE
  61. GABAPENTIN [Concomitant]
     Active Substance: GABAPENTIN
     Indication: Back pain
     Dosage: 900 MILLIGRAM, TID (THREE TIMES A DAY)
  62. GABAPENTIN [Concomitant]
     Active Substance: GABAPENTIN
     Dosage: 900 MILLIGRAM, TID (THREE TIMES A DAY)
     Route: 065
  63. GABAPENTIN [Concomitant]
     Active Substance: GABAPENTIN
     Dosage: 900 MILLIGRAM, TID (THREE TIMES A DAY)
     Route: 065
  64. GABAPENTIN [Concomitant]
     Active Substance: GABAPENTIN
     Dosage: 900 MILLIGRAM, TID (THREE TIMES A DAY)
  65. NABILONE [Concomitant]
     Active Substance: NABILONE
  66. NABILONE [Concomitant]
     Active Substance: NABILONE
     Route: 065
  67. NABILONE [Concomitant]
     Active Substance: NABILONE
     Route: 065
  68. NABILONE [Concomitant]
     Active Substance: NABILONE
  69. OMEPRAZOLE [Concomitant]
     Active Substance: OMEPRAZOLE
  70. OMEPRAZOLE [Concomitant]
     Active Substance: OMEPRAZOLE
     Route: 065
  71. OMEPRAZOLE [Concomitant]
     Active Substance: OMEPRAZOLE
     Route: 065
  72. OMEPRAZOLE [Concomitant]
     Active Substance: OMEPRAZOLE

REACTIONS (20)
  - Cardiac arrest [Recovered/Resolved]
  - Abdominal pain [Unknown]
  - Faeces discoloured [Recovered/Resolved]
  - Musculoskeletal pain [Unknown]
  - Bronchitis [Unknown]
  - Oropharyngeal pain [Unknown]
  - Cough [Unknown]
  - Pyrexia [Not Recovered/Not Resolved]
  - Increased upper airway secretion [Unknown]
  - Burning sensation [Unknown]
  - Rhinorrhoea [Unknown]
  - Back pain [Unknown]
  - Gastritis [Unknown]
  - Oesophagitis [Unknown]
  - Abdominal pain upper [Not Recovered/Not Resolved]
  - Paraesthesia [Unknown]
  - Blood pressure increased [Unknown]
  - Diarrhoea [Unknown]
  - Headache [Unknown]
  - Incorrect dose administered [Unknown]

NARRATIVE: CASE EVENT DATE: 20191201
